FAERS Safety Report 8803829 (Version 1)
Quarter: 2012Q4

REPORT INFORMATION
  Report Type: 
  Country: ES (occurrence: ES)
  Receive Date: 20120924
  Receipt Date: 20120924
  Transmission Date: 20130627
  Serious: Yes (Hospitalization)
  Sender: FDA-Public Use
  Company Number: ES-GILEAD-2012-0061343

PATIENT
  Age: 42 Year
  Sex: Female

DRUGS (8)
  1. TRUVADA [Suspect]
     Indication: HIV INFECTION
     Dosage: 445 mg, QD
     Route: 048
     Dates: start: 20120131, end: 20120228
  2. REYATAZ [Suspect]
     Indication: HIV INFECTION
     Dosage: 300 mg, QD
     Route: 048
     Dates: start: 20120131, end: 20120228
  3. ALUVIA [Suspect]
     Indication: HIV INFECTION
     Route: 048
     Dates: start: 20120131, end: 20120228
  4. REYATAZ [Concomitant]
     Dosage: 300 mg, UNK
     Dates: start: 2009, end: 2011
  5. ALUVIA [Concomitant]
     Dates: start: 2009, end: 2011
  6. TRAMADOL HYDROCHLORIDE [Concomitant]
     Indication: PAIN
     Route: 048
     Dates: start: 2012
  7. IBUPROFENO [Concomitant]
     Indication: PAIN
     Route: 048
     Dates: start: 2012
  8. FOSAVANCE [Concomitant]
     Indication: OSTEOPOROSIS
     Route: 048
     Dates: start: 2012

REACTIONS (1)
  - Osteonecrosis [Recovered/Resolved with Sequelae]
